FAERS Safety Report 6838542-1 (Version None)
Quarter: 2010Q3

REPORT INFORMATION
  Report Type: 
  Country: None (occurrence: None)
  Receive Date: 20100713
  Receipt Date: 20070617
  Transmission Date: 20110219
  Serious: No
  Sender: FDA-Public Use
  Company Number: US-PFIZER INC-2007050854

PATIENT
  Age: 68 Year
  Sex: Female

DRUGS (2)
  1. CHANTIX [Suspect]
     Indication: SMOKING CESSATION THERAPY
     Route: 048
     Dates: start: 20070617
  2. CARDIOVASCULAR SYSTEM DRUGS [Concomitant]

REACTIONS (2)
  - BLOOD PRESSURE INCREASED [None]
  - DIZZINESS [None]
